FAERS Safety Report 12491710 (Version 1)
Quarter: 2016Q2

REPORT INFORMATION
  Report Type: Spontaneous
  Country: US (occurrence: US)
  Receive Date: 20160623
  Receipt Date: 20160623
  Transmission Date: 20160815
  Serious: No
  Sender: FDA-Public Use
  Company Number: US-PFIZER INC-2016180008

PATIENT
  Age: 64 Year
  Sex: Female

DRUGS (2)
  1. VFEND [Suspect]
     Active Substance: VORICONAZOLE
     Indication: ASPERGILLUS INFECTION
     Dosage: 250 MG, 2X/DAY (200 MG TABLET IN ADDITION TO 50 MG TABLET)
     Route: 048
     Dates: start: 20160324
  2. VFEND [Suspect]
     Active Substance: VORICONAZOLE
     Indication: BRONCHIECTASIS

REACTIONS (1)
  - Weight decreased [Unknown]
